FAERS Safety Report 13578162 (Version 1)
Quarter: 2017Q2

REPORT INFORMATION
  Report Type: Report from Study
  Country: BR (occurrence: BR)
  Receive Date: 20170524
  Receipt Date: 20170524
  Transmission Date: 20170830
  Serious: Yes (Death)
  Sender: FDA-Public Use
  Company Number: PHHY2017BR076234

PATIENT
  Sex: Female
  Weight: 55.56 kg

DRUGS (2)
  1. FORASEQ [Suspect]
     Active Substance: BUDESONIDE\FORMOTEROL FUMARATE
     Indication: ASTHMA
     Dosage: 1 DF (BUDESONIDE 400 UG/ FORMOTEROL FUMARATE 12 UG), BID
     Route: 055
     Dates: end: 201704
  2. FORASEQ [Suspect]
     Active Substance: BUDESONIDE\FORMOTEROL FUMARATE
     Indication: DYSPNOEA

REACTIONS (3)
  - Dysphagia [Unknown]
  - Myocardial infarction [Fatal]
  - Arteriosclerosis [Fatal]
